FAERS Safety Report 8154138-6 (Version None)
Quarter: 2012Q1

REPORT INFORMATION
  Report Type: 
  Country: None (occurrence: None)
  Receive Date: 20120221
  Receipt Date: 20120210
  Transmission Date: 20120608
  Serious: No
  Sender: FDA-Public Use
  Company Number: US-B.I. PHARMACEUTICALS,INC./RIDGEFIELD-2012-BP-02794BP

PATIENT
  Sex: Male

DRUGS (5)
  1. NASONEX SPR [Concomitant]
  2. EFFEXOR XR [Concomitant]
  3. HELIXATE FS [Concomitant]
  4. ANDROGEL [Concomitant]
  5. COMBIVENT [Suspect]

REACTIONS (2)
  - HAEMORRHAGE [None]
  - MOUTH HAEMORRHAGE [None]
